FAERS Safety Report 25880640 (Version 2)
Quarter: 2025Q4

REPORT INFORMATION
  Report Type: Spontaneous
  Country: JP (occurrence: JP)
  Receive Date: 20251004
  Receipt Date: 20251012
  Transmission Date: 20260119
  Serious: Yes (Hospitalization)
  Sender: JOHNSON AND JOHNSON
  Company Number: JP-JNJFOC-20251000418

PATIENT
  Age: 64 Year
  Sex: Male
  Weight: 55.0 kg

DRUGS (4)
  1. RYBREVANT [Suspect]
     Active Substance: AMIVANTAMAB-VMJW
     Indication: EGFR gene mutation
     Route: 041
     Dates: start: 20250909, end: 20250909
  2. RYBREVANT [Suspect]
     Active Substance: AMIVANTAMAB-VMJW
     Dosage: DOSE UNKNOWN, DAY2
     Route: 041
     Dates: start: 20250910, end: 20250910
  3. CARBOPLATIN [Suspect]
     Active Substance: CARBOPLATIN
     Indication: EGFR gene mutation
     Route: 041
     Dates: start: 20250909, end: 20250909
  4. PEMETREXED [Suspect]
     Active Substance: PEMETREXED
     Indication: EGFR gene mutation
     Dosage: DOSE UNKNOWN
     Route: 041
     Dates: start: 20250909, end: 20250909

REACTIONS (4)
  - Pancreatitis [Recovered/Resolved]
  - Infusion related reaction [Unknown]
  - Oxygen saturation decreased [Unknown]
  - Headache [Unknown]

NARRATIVE: CASE EVENT DATE: 20250909
